FAERS Safety Report 24419650 (Version 2)
Quarter: 2025Q4

REPORT INFORMATION
  Report Type: Spontaneous
  Country: US (occurrence: US)
  Receive Date: 20241010
  Receipt Date: 20251003
  Transmission Date: 20260117
  Serious: No
  Sender: ROCHE
  Company Number: US-ROCHE-10000097476

PATIENT
  Age: 37 Year
  Sex: Female

DRUGS (1)
  1. RITUXAN [Suspect]
     Active Substance: RITUXIMAB
     Indication: Product used for unknown indication
     Dosage: STRENGHT: 100MG/10ML
     Route: 042

REACTIONS (2)
  - Maternal exposure timing unspecified [Unknown]
  - Drug ineffective [Unknown]
